FAERS Safety Report 13902380 (Version 1)
Quarter: 2017Q3

REPORT INFORMATION
  Report Type: Spontaneous
  Country: JP (occurrence: JP)
  Receive Date: 20170824
  Receipt Date: 20170824
  Transmission Date: 20171127
  Serious: Yes (Death)
  Sender: FDA-Public Use
  Company Number: JP-CIPLA LTD.-2017JP14494

PATIENT

DRUGS (8)
  1. OXALIPLATIN. [Suspect]
     Active Substance: OXALIPLATIN
     Indication: COLON CANCER
  2. BEVACIZUMAB. [Suspect]
     Active Substance: BEVACIZUMAB
     Indication: ADENOSQUAMOUS CELL CARCINOMA
     Dosage: UNK
     Route: 065
  3. LEUCOVORIN. [Suspect]
     Active Substance: LEUCOVORIN
     Indication: ADENOSQUAMOUS CELL CARCINOMA
     Dosage: UNK
     Route: 065
  4. FLUOROURACIL. [Suspect]
     Active Substance: FLUOROURACIL
     Indication: COLON CANCER
  5. OXALIPLATIN. [Suspect]
     Active Substance: OXALIPLATIN
     Indication: ADENOSQUAMOUS CELL CARCINOMA
     Dosage: UNK
     Route: 065
  6. FLUOROURACIL. [Suspect]
     Active Substance: FLUOROURACIL
     Indication: ADENOSQUAMOUS CELL CARCINOMA
     Dosage: UNK
     Route: 065
  7. BEVACIZUMAB. [Suspect]
     Active Substance: BEVACIZUMAB
     Indication: COLON CANCER
  8. LEUCOVORIN. [Suspect]
     Active Substance: LEUCOVORIN
     Indication: COLON CANCER

REACTIONS (1)
  - Death [Fatal]
